FAERS Safety Report 16044149 (Version 1)
Quarter: 2019Q1

REPORT INFORMATION
  Report Type: Report from Study
  Country: US (occurrence: US)
  Receive Date: 20190306
  Receipt Date: 20190306
  Transmission Date: 20190418
  Serious: Yes (Death)
  Sender: FDA-Public Use
  Company Number: US-ACTELION-A-NJ2019-185050

PATIENT
  Age: 42 Year
  Sex: Female

DRUGS (4)
  1. OPSUMIT [Suspect]
     Active Substance: MACITENTAN
     Indication: PULMONARY ARTERIAL HYPERTENSION
     Dosage: 10 MG, QD
     Route: 048
     Dates: start: 20181206
  2. OXYGEN. [Concomitant]
     Active Substance: OXYGEN
  3. BUMEX [Concomitant]
     Active Substance: BUMETANIDE
     Dosage: 2 MG, BID
     Dates: start: 2018
  4. SILDENAFIL. [Concomitant]
     Active Substance: SILDENAFIL
     Dosage: 10 MG, TID
     Dates: start: 201810, end: 201812

REACTIONS (7)
  - Fluid retention [Not Recovered/Not Resolved]
  - Condition aggravated [Unknown]
  - Death [Fatal]
  - Weight increased [Not Recovered/Not Resolved]
  - Dyspnoea [Not Recovered/Not Resolved]
  - Tooth infection [Unknown]
  - Fatigue [Unknown]

NARRATIVE: CASE EVENT DATE: 201812
